FAERS Safety Report 10872588 (Version 2)
Quarter: 2015Q2

REPORT INFORMATION
  Report Type: Spontaneous
  Country: IT (occurrence: IT)
  Receive Date: 20150227
  Receipt Date: 20150519
  Transmission Date: 20150821
  Serious: Yes (Hospitalization)
  Sender: FDA-Public Use
  Company Number: IT-ROCHE-1545541

PATIENT
  Age: 44 Year
  Sex: Female

DRUGS (3)
  1. LYRICA [Concomitant]
     Active Substance: PREGABALIN
     Dosage: 25 MG HARD CAPSULE - ORAL USE 14 CAPSULES
     Route: 048
  2. RIVOTRIL [Suspect]
     Active Substance: CLONAZEPAM
     Indication: DRUG ABUSE
     Dosage: ^2.5MG/ML ORAL DROPS, SOLUTION^ 10ML BOTTLE
     Route: 048
     Dates: start: 20150222, end: 20150222
  3. TARGIN [Suspect]
     Active Substance: NALOXONE HYDROCHLORIDE\OXYCODONE HYDROCHLORIDE
     Indication: DRUG ABUSE
     Dosage: ^10 MG/5 MG EXTENDED RELEASE TABLETS^ 28 TABLETS
     Route: 048
     Dates: start: 20150222, end: 20150222

REACTIONS (3)
  - Coma [Recovering/Resolving]
  - Acute respiratory failure [Recovering/Resolving]
  - Drug abuse [Unknown]

NARRATIVE: CASE EVENT DATE: 20150222
